FAERS Safety Report 9311999 (Version 2)
Quarter: 2013Q3

REPORT INFORMATION
  Report Type: Spontaneous
  Country: BR (occurrence: BR)
  Receive Date: 20130528
  Receipt Date: 20130801
  Transmission Date: 20140515
  Serious: Yes (Other)
  Sender: FDA-Public Use
  Company Number: PHHY2013BR052803

PATIENT
  Sex: Male

DRUGS (1)
  1. TEGRETOL [Suspect]
     Indication: EPILEPSY
     Dosage: 4 TABLETS PER DAY (400 MG IN THE MORNING AND 400 MG AT NIGHT)
     Route: 048

REACTIONS (4)
  - Viral infection [Recovered/Resolved]
  - Mouth haemorrhage [Not Recovered/Not Resolved]
  - Pharyngeal inflammation [Recovered/Resolved]
  - Dyskinesia [Not Recovered/Not Resolved]
